FAERS Safety Report 11012440 (Version 1)
Quarter: 2015Q2

REPORT INFORMATION
  Report Type: Spontaneous
  Country: None (occurrence: None)
  Receive Date: 20150410
  Receipt Date: 20150410
  Transmission Date: 20150821
  Serious: No
  Sender: FDA-Public Use
  Company Number: None

PATIENT
  Age: 24 Year
  Sex: Male

DRUGS (2)
  1. TOPIRAMATE. [Suspect]
     Active Substance: TOPIRAMATE
     Indication: MIGRAINE PROPHYLAXIS
     Dosage: 50 MG, QHS/BEDTIME/ ORAL
     Route: 048
  2. ESZOPICLONE. [Suspect]
     Active Substance: ESZOPICLONE
     Indication: SLEEP DISORDER THERAPY
     Dosage: 2 MG, QHS/BEDTIME, ORAL
     Route: 048
     Dates: start: 20150401, end: 20150402

REACTIONS (2)
  - Incorrect dose administered [None]
  - Hallucination, visual [None]

NARRATIVE: CASE EVENT DATE: 20150402
